FAERS Safety Report 20472947 (Version 3)
Quarter: 2022Q2

REPORT INFORMATION
  Report Type: Spontaneous
  Country: US (occurrence: US)
  Receive Date: 20220215
  Receipt Date: 20220415
  Transmission Date: 20220721
  Serious: No
  Sender: FDA-Public Use
  Company Number: US-TEVA-2022-US-2004877

PATIENT
  Age: 58 Year
  Sex: Female
  Weight: 81.19 kg

DRUGS (3)
  1. AUSTEDO [Suspect]
     Active Substance: DEUTETRABENAZINE
     Indication: Tardive dyskinesia
     Dosage: 36 MILLIGRAM DAILY;
     Route: 065
     Dates: start: 202103
  2. AUSTEDO [Suspect]
     Active Substance: DEUTETRABENAZINE
     Dosage: 36 MILLIGRAM DAILY;
     Route: 065
     Dates: start: 202201
  3. AUSTEDO [Suspect]
     Active Substance: DEUTETRABENAZINE
     Dosage: CUT THE REMAINING PILLS IN HALF
     Route: 065
     Dates: start: 202201

REACTIONS (7)
  - Speech disorder [Unknown]
  - Adverse event [Unknown]
  - Incorrect dose administered [Unknown]
  - Inappropriate schedule of product administration [Unknown]
  - Wrong technique in product usage process [Unknown]
  - Product availability issue [Unknown]
  - Dyskinesia [Unknown]

NARRATIVE: CASE EVENT DATE: 20220101
